FAERS Safety Report 7504232-5 (Version None)
Quarter: 2011Q2

REPORT INFORMATION
  Report Type: 
  Country: None (occurrence: None)
  Receive Date: 20110525
  Receipt Date: 20110513
  Transmission Date: 20111010
  Serious: Yes (Hospitalization, Other)
  Sender: FDA-Public Use
  Company Number: US-BAYER-201041593NA

PATIENT
  Age: 18 Year
  Sex: Female
  Weight: 52.154 kg

DRUGS (7)
  1. YASMIN [Suspect]
     Indication: CONTRACEPTION
     Dosage: 1 DF, QD
     Route: 048
     Dates: start: 20040101, end: 20080601
  2. DROSPIRENONE AND ETHINYL ESTRADIOL [Suspect]
     Dosage: UNK
     Dates: start: 20070101, end: 20090101
  3. YAZ [Suspect]
     Indication: CONTRACEPTION
     Dosage: 1 DF, QD
     Dates: start: 20050101, end: 20060101
  4. YAZ [Suspect]
     Dosage: UNK
     Dates: start: 20070101, end: 20070101
  5. YASMIN [Suspect]
     Dosage: UNK
     Dates: start: 20050101, end: 20070101
  6. DROSPIRENONE AND ETHINYL ESTRADIOL [Suspect]
     Indication: CONTRACEPTION
     Dosage: 1 DF, QD
     Route: 065
     Dates: start: 20080701, end: 20090801
  7. NEXIUM [Concomitant]

REACTIONS (3)
  - PANCREATITIS [None]
  - CHOLECYSTITIS [None]
  - GALLBLADDER DISORDER [None]
